FAERS Safety Report 10975550 (Version 1)
Quarter: 2015Q2

REPORT INFORMATION
  Report Type: Spontaneous
  Country: US (occurrence: US)
  Receive Date: 20150401
  Receipt Date: 20150401
  Transmission Date: 20150821
  Serious: Yes (Death, Hospitalization, Other)
  Sender: FDA-Public Use
  Company Number: US-TEVA-551234USA

PATIENT
  Age: 59 Year
  Sex: Female

DRUGS (12)
  1. SIMVASTATIN. [Concomitant]
     Active Substance: SIMVASTATIN
  2. ARIPIPRAZOLE. [Concomitant]
     Active Substance: ARIPIPRAZOLE
  3. NAPROXEN. [Suspect]
     Active Substance: NAPROXEN
     Route: 065
  4. PHENELZINE [Concomitant]
     Active Substance: PHENELZINE
  5. LEVOTHYROXINE [Concomitant]
     Active Substance: LEVOTHYROXINE
  6. CLONAZEPAM. [Concomitant]
     Active Substance: CLONAZEPAM
  7. COCAINE [Suspect]
     Active Substance: COCAINE
     Route: 065
  8. FENTANYL. [Suspect]
     Active Substance: FENTANYL
     Indication: PRODUCT USED FOR UNKNOWN INDICATION
     Route: 065
  9. TEMAZEPAM. [Concomitant]
     Active Substance: TEMAZEPAM
  10. GABAPENTIN. [Concomitant]
     Active Substance: GABAPENTIN
  11. TRAMADOL/ACETAMINOPHEN [Concomitant]
     Active Substance: ACETAMINOPHEN\TRAMADOL
  12. OMEPRAZOLE. [Concomitant]
     Active Substance: OMEPRAZOLE

REACTIONS (11)
  - Drug abuse [Fatal]
  - Cardiac arrest [Fatal]
  - Hypoxic-ischaemic encephalopathy [Fatal]
  - Cardio-respiratory arrest [Fatal]
  - Acute respiratory distress syndrome [Fatal]
  - Blood pressure increased [Not Recovered/Not Resolved]
  - Pulseless electrical activity [Fatal]
  - Myocarditis [Fatal]
  - Overdose [Fatal]
  - Respiratory distress [Fatal]
  - Blood pressure decreased [Not Recovered/Not Resolved]
